FAERS Safety Report 13989112 (Version 1)
Quarter: 2017Q3

REPORT INFORMATION
  Report Type: Spontaneous
  Country: US (occurrence: None)
  Receive Date: 20170919
  Receipt Date: 20170919
  Transmission Date: 20171128
  Serious: Yes (Death)
  Sender: FDA-Public Use
  Company Number: None

PATIENT
  Age: 61 Year
  Sex: Female

DRUGS (8)
  1. POLYETH GLYC [Concomitant]
     Active Substance: POLYETHYLENE GLYCOLS
  2. DULOXETI [Concomitant]
  3. DOCQLACE [Concomitant]
     Active Substance: DOCUSATE SODIUM
  4. AMLODIPINE [Concomitant]
     Active Substance: AMLODIPINE BESYLATE
  5. CALCIUM [Concomitant]
     Active Substance: CALCIUM
  6. ZOLEDRONIC ACID [Suspect]
     Active Substance: ZOLEDRONIC ACID
     Indication: LUNG NEOPLASM MALIGNANT
     Route: 042
     Dates: start: 20170425, end: 20170912
  7. PROCHLOPER [Concomitant]
  8. FLUTICASONE. [Concomitant]
     Active Substance: FLUTICASONE

REACTIONS (1)
  - Death [None]

NARRATIVE: CASE EVENT DATE: 20170912
